FAERS Safety Report 9827680 (Version 1)
Quarter: 2014Q1

REPORT INFORMATION
  Report Type: Spontaneous
  Country: JP (occurrence: JP)
  Receive Date: 20140117
  Receipt Date: 20140117
  Transmission Date: 20141002
  Serious: Yes (Other)
  Sender: FDA-Public Use
  Company Number: JP-TEVA-454669ISR

PATIENT
  Sex: 0

DRUGS (1)
  1. IBUPROFEN,TAB,100MG [Suspect]

REACTIONS (1)
  - Deafness [Unknown]
